FAERS Safety Report 6844593-3 (Version None)
Quarter: 2010Q3

REPORT INFORMATION
  Report Type: 
  Country: None (occurrence: None)
  Receive Date: 20100715
  Receipt Date: 20100709
  Transmission Date: 20110219
  Serious: Yes (Death)
  Sender: FDA-Public Use
  Company Number: JP-SANOFI-AVENTIS-2010SA040073

PATIENT
  Age: 74 Year
  Sex: Female
  Weight: 53 kg

DRUGS (13)
  1. LANTUS [Suspect]
     Indication: TYPE 2 DIABETES MELLITUS
     Dosage: DOSE:16 UNIT(S)
     Route: 058
     Dates: start: 20100628, end: 20100705
  2. SOLOSTAR [Suspect]
     Dates: start: 20100628, end: 20100705
  3. AMARYL [Concomitant]
     Indication: TYPE 2 DIABETES MELLITUS
     Dates: start: 20100628, end: 20100705
  4. ITOROL [Concomitant]
     Dates: end: 20100705
  5. SIGMART [Concomitant]
     Dates: end: 20100705
  6. ASPIRIN [Concomitant]
     Dates: end: 20100705
  7. MAINTATE [Concomitant]
     Dates: end: 20100705
  8. PLETAL [Concomitant]
     Dates: end: 20100705
  9. BEPRICOR [Concomitant]
     Dates: end: 20100705
  10. CRESTOR [Concomitant]
     Dates: end: 20100705
  11. LASIX [Concomitant]
     Dates: end: 20100705
  12. GASTER D [Concomitant]
     Dates: end: 20100705
  13. NOVORAPID [Concomitant]
     Dosage: 14-0-10 UNTIS/DAY
     Route: 058
     Dates: end: 20100627

REACTIONS (1)
  - ACUTE MYOCARDIAL INFARCTION [None]
